FAERS Safety Report 10609923 (Version 1)
Quarter: 2014Q4

REPORT INFORMATION
  Report Type: Spontaneous
  Country: US (occurrence: None)
  Receive Date: 20141121
  Receipt Date: 20141121
  Transmission Date: 20150529
  Serious: Yes (Hospitalization)
  Sender: FDA-Public Use
  Company Number: PR 2102

PATIENT
  Age: 77 Year
  Sex: Female

DRUGS (10)
  1. CALCIUM ASPARTATE [Concomitant]
     Active Substance: CALCIUM ASPARTATE
  2. DIPHENIDOL HYDROCHLORIDE [Concomitant]
     Active Substance: DIPHENIDOL HYDROCHLORIDE
  3. BETAMETHASONE SODIUM PHOSPHATE [Concomitant]
     Active Substance: BETAMETHASONE SODIUM PHOSPHATE
  4. BETAHISTINE MESYLATE [Concomitant]
  5. HYALURONATE SODIUM [Concomitant]
     Active Substance: HYALURONATE SODIUM
  6. PITAVASTATIN CALCIUM [Concomitant]
     Active Substance: PITAVASTATIN CALCIUM
  7. AMLODIPINE BESYLATE. [Concomitant]
     Active Substance: AMLODIPINE BESYLATE
  8. ZIOPTAN [Suspect]
     Active Substance: TAFLUPROST
     Indication: GLAUCOMA
     Dates: start: 20130311, end: 20131108
  9. ALENDRONATE SODIUM. [Concomitant]
     Active Substance: ALENDRONATE SODIUM
  10. ASPIRIN. [Concomitant]
     Active Substance: ASPIRIN

REACTIONS (2)
  - Visual field tests abnormal [None]
  - Dizziness [None]

NARRATIVE: CASE EVENT DATE: 20130611
